FAERS Safety Report 16223852 (Version 1)
Quarter: 2019Q2

REPORT INFORMATION
  Report Type: Report from Study
  Country: IT (occurrence: IT)
  Receive Date: 20190422
  Receipt Date: 20190422
  Transmission Date: 20190711
  Serious: Yes (Other)
  Sender: FDA-Public Use
  Company Number: IT-PFIZER INC-2019167906

PATIENT
  Age: 26 Year
  Sex: Female

DRUGS (2)
  1. KLACID [CLARITHROMYCIN] [Suspect]
     Active Substance: CLARITHROMYCIN
  2. MEDROL [Suspect]
     Active Substance: METHYLPREDNISOLONE

REACTIONS (3)
  - Dyspepsia [Unknown]
  - Gastrooesophageal reflux disease [Unknown]
  - Abdominal pain upper [Unknown]

NARRATIVE: CASE EVENT DATE: 20190115
